FAERS Safety Report 24206192 (Version 1)
Quarter: 2024Q3

REPORT INFORMATION
  Report Type: Report from Study
  Country: FR (occurrence: None)
  Receive Date: 20240813
  Receipt Date: 20240813
  Transmission Date: 20241016
  Serious: Yes (Other)
  Sender: ASTRAZENECA
  Company Number: 2024A091075

PATIENT
  Sex: Male

DRUGS (1)
  1. LYNPARZA [Suspect]
     Active Substance: OLAPARIB
     Indication: Prostate cancer metastatic
     Route: 048
     Dates: start: 20240315, end: 20240627

REACTIONS (5)
  - Renal failure [Unknown]
  - Glomerular filtration rate decreased [Unknown]
  - Renal impairment [Unknown]
  - Anaemia [Unknown]
  - Off label use [Unknown]
